FAERS Safety Report 7563281-1 (Version None)
Quarter: 2011Q2

REPORT INFORMATION
  Report Type: 
  Country: None (occurrence: None)
  Receive Date: 20110622
  Receipt Date: 20110615
  Transmission Date: 20111010
  Serious: Yes (Hospitalization)
  Sender: FDA-Public Use
  Company Number: GB-B.I. PHARMACEUTICALS,INC./RIDGEFIELD-2010-UK-00452UK

PATIENT
  Sex: Male
  Weight: 93 kg

DRUGS (5)
  1. RANITIDINE [Concomitant]
     Indication: PROPHYLAXIS
     Dosage: 150 MG
     Route: 048
     Dates: start: 20100510
  2. TRAMADOL HCL [Concomitant]
     Indication: PROCEDURAL PAIN
     Dosage: 50-100 MG
     Route: 048
     Dates: start: 20100512
  3. ROSUVASTATIN [Concomitant]
     Indication: HYPERCHOLESTEROLAEMIA
     Dosage: 40 MG
     Route: 048
     Dates: start: 20100512
  4. AMLODIPINE [Concomitant]
     Indication: HYPERTENSION
     Dosage: 10 MG
     Route: 048
     Dates: start: 20100512
  5. DABIGATRAN (00015/0485/001-0001) [Suspect]
     Indication: THROMBOSIS PROPHYLAXIS
     Dosage: 220 MG
     Route: 048
     Dates: start: 20100510, end: 20100512

REACTIONS (2)
  - DRUG INEFFECTIVE [None]
  - PULMONARY EMBOLISM [None]
